FAERS Safety Report 13655540 (Version 1)
Quarter: 2017Q2

REPORT INFORMATION
  Report Type: Spontaneous
  Country: US (occurrence: US)
  Receive Date: 20170614
  Receipt Date: 20170614
  Transmission Date: 20170830
  Serious: No
  Sender: FDA-Public Use
  Company Number: None

PATIENT
  Age: 9 Year
  Sex: Female
  Weight: 28.8 kg

DRUGS (6)
  1. ARIPRAZOLE [Concomitant]
     Active Substance: ARIPIPRAZOLE
  2. LUPRON DEPOT-PED [Suspect]
     Active Substance: LEUPROLIDE ACETATE
     Indication: PRECOCIOUS PUBERTY
     Dosage: OTHER FREQUENCY:EVERY 28 DAYS;?
     Route: 030
     Dates: start: 20170605
  3. CLONIDINE. [Concomitant]
     Active Substance: CLONIDINE
  4. DIAZEPAM. [Concomitant]
     Active Substance: DIAZEPAM
  5. LAMOTRIGINE. [Concomitant]
     Active Substance: LAMOTRIGINE
  6. CHLORPROMAZINE. [Concomitant]
     Active Substance: CHLORPROMAZINE

REACTIONS (2)
  - Agitation [None]
  - Blood pressure increased [None]

NARRATIVE: CASE EVENT DATE: 20170605
